FAERS Safety Report 23217789 (Version 1)
Quarter: 2023Q4

REPORT INFORMATION
  Report Type: Spontaneous
  Country: BR (occurrence: BR)
  Receive Date: 20231122
  Receipt Date: 20231122
  Transmission Date: 20240109
  Serious: Yes (Other)
  Sender: FDA-Public Use
  Company Number: BR-PHATHOM PHARMACEUTICALS INC.-2023PHT00268

PATIENT
  Sex: Male
  Weight: 87 kg

DRUGS (2)
  1. VONOPRAZAN FUMARATE [Suspect]
     Active Substance: VONOPRAZAN FUMARATE
     Indication: Gastrointestinal disorder prophylaxis
     Dosage: 10 MG, 1X/DAY
     Route: 048
     Dates: start: 20230811
  2. LOSARTAN [Concomitant]
     Active Substance: LOSARTAN
     Dosage: UNK

REACTIONS (6)
  - Diabetes mellitus [Unknown]
  - Syncope [Unknown]
  - Prostate cancer [Unknown]
  - Abdominal pain [Unknown]
  - Off label use [Unknown]
  - Nausea [Unknown]
